FAERS Safety Report 13146239 (Version 1)
Quarter: 2017Q1

REPORT INFORMATION
  Report Type: Spontaneous
  Country: BR (occurrence: BR)
  Receive Date: 20170125
  Receipt Date: 20170125
  Transmission Date: 20170428
  Serious: Yes (Hospitalization)
  Sender: FDA-Public Use
  Company Number: BR-BAXTER-2017BAX002372

PATIENT
  Age: 20 Year
  Sex: Female
  Weight: 65 kg

DRUGS (1)
  1. METRONIFLEX [Suspect]
     Active Substance: METRONIDAZOLE
     Indication: ENTEROCOLITIS
     Dosage: 5MG/ML PER 100MG BAG
     Route: 065
     Dates: start: 20161012, end: 20161018

REACTIONS (3)
  - Nausea [Recovered/Resolved]
  - Choluria [Recovered/Resolved]
  - Vomiting [Recovered/Resolved]

NARRATIVE: CASE EVENT DATE: 20161013
